FAERS Safety Report 9403645 (Version 4)
Quarter: 2013Q4

REPORT INFORMATION
  Report Type: Report from Study
  Country: CO (occurrence: CO)
  Receive Date: 20130717
  Receipt Date: 20131125
  Transmission Date: 20140711
  Serious: Yes (Other)
  Sender: FDA-Public Use
  Company Number: CO-ROCHE-1249275

PATIENT
  Age: 55 Year
  Sex: Male
  Weight: 97 kg

DRUGS (4)
  1. RANIBIZUMAB [Suspect]
     Indication: MACULAR DEGENERATION
     Route: 050
     Dates: start: 201203
  2. METFORMIN HYDROCHLORIDE [Concomitant]
  3. LOSARTAN [Concomitant]
  4. INSULIN [Concomitant]

REACTIONS (2)
  - Eye haemorrhage [Recovered/Resolved]
  - Malaise [Recovering/Resolving]
